FAERS Safety Report 7400172-0 (Version None)
Quarter: 2011Q2

REPORT INFORMATION
  Report Type: 
  Country: None (occurrence: None)
  Receive Date: 20110407
  Receipt Date: 20110324
  Transmission Date: 20111010
  Serious: Yes (Death, Hospitalization)
  Sender: FDA-Public Use
  Company Number: US-CELGENEUS-163-21880-11022573

PATIENT
  Age: 84 Year
  Sex: Female
  Weight: 76.4 kg

DRUGS (15)
  1. REVLIMID [Suspect]
     Indication: MULTIPLE MYELOMA
     Dosage: 25 MILLIGRAM
     Route: 048
     Dates: start: 20100714
  2. REVLIMID [Suspect]
     Dosage: 25 MILLIGRAM
     Route: 048
     Dates: start: 20110126, end: 20110209
  3. DILAUDID [Suspect]
     Route: 065
  4. DEXAMETHASONE [Suspect]
     Dosage: 40 MILLIGRAM
     Route: 048
     Dates: start: 20110126, end: 20110209
  5. FLEXERIL [Suspect]
     Route: 065
  6. LEXAPRO [Suspect]
     Route: 065
  7. PROTONIX [Suspect]
     Route: 065
  8. HYDROCODONE [Suspect]
     Route: 065
  9. ASPIRIN [Concomitant]
     Dosage: 325 MILLIGRAM
     Route: 048
  10. ANTIVIRAL [Concomitant]
     Indication: PROPHYLAXIS
     Route: 065
  11. XANAX [Suspect]
     Route: 065
  12. DILAUDID [Suspect]
     Dosage: .4 MILLIGRAM
     Route: 051
     Dates: start: 20110209
  13. RIVASTIGMINE [Suspect]
     Route: 065
  14. REVLIMID [Suspect]
     Dosage: 25 MILLIGRAM
     Route: 048
     Dates: start: 20101229
  15. DEXAMETHASONE [Suspect]
     Indication: MULTIPLE MYELOMA
     Dosage: 40 MILLIGRAM
     Route: 048
     Dates: start: 20100714

REACTIONS (5)
  - MULTIPLE MYELOMA [None]
  - ENCEPHALOPATHY [None]
  - NAUSEA [None]
  - COGNITIVE DISORDER [None]
  - MUSCULOSKELETAL PAIN [None]
